FAERS Safety Report 18282768 (Version 1)
Quarter: 2020Q3

REPORT INFORMATION
  Report Type: Spontaneous
  Country: US (occurrence: US)
  Receive Date: 20200918
  Receipt Date: 20200918
  Transmission Date: 20201103
  Serious: Yes (Other)
  Sender: FDA-Public Use
  Company Number: US-PFIZER INC-2020357945

PATIENT
  Age: 44 Year
  Sex: Female

DRUGS (4)
  1. METHADONE [Suspect]
     Active Substance: METHADONE HYDROCHLORIDE
  2. OXYCONTIN [Suspect]
     Active Substance: OXYCODONE HYDROCHLORIDE
  3. XANAX [Suspect]
     Active Substance: ALPRAZOLAM
  4. OXYCODONE ER [Suspect]
     Active Substance: OXYCODONE
     Dosage: UNK

REACTIONS (5)
  - Dependence [Unknown]
  - Pain [Unknown]
  - Anxiety [Unknown]
  - Insomnia [Unknown]
  - Migraine [Unknown]
